FAERS Safety Report 8445865 (Version 2)
Quarter: 2012Q4

REPORT INFORMATION
  Report Type: 
  Country: US (occurrence: US)
  Receive Date: 20120307
  Receipt Date: 20121031
  Transmission Date: 20130627
  Serious: No
  Sender: FDA-Public Use
  Company Number: US-ASTRAZENECA-2011SE73831

PATIENT
  Age: 51 Year
  Sex: Female

DRUGS (1)
  1. ZOMIG [Suspect]
     Route: 048

REACTIONS (3)
  - Migraine [Unknown]
  - Crohn^s disease [Unknown]
  - Intentional drug misuse [Unknown]
